FAERS Safety Report 9265355 (Version 2)
Quarter: 2013Q2

REPORT INFORMATION
  Report Type: Spontaneous
  Country: DE (occurrence: DE)
  Receive Date: 20130501
  Receipt Date: 20130514
  Transmission Date: 20140414
  Serious: Yes (Other)
  Sender: FDA-Public Use
  Company Number: DE-B.I. PHARMACEUTICALS,INC./RIDGEFIELD-2013-DE-01180DE

PATIENT
  Sex: Female
  Weight: 69 kg

DRUGS (9)
  1. SIFROL [Suspect]
     Indication: PARKINSON^S DISEASE
     Dosage: 1X1 2,15 AND 1X1 0,52 AT THE MOMENT
     Dates: start: 2010
  2. SIFROL [Suspect]
     Dosage: 2,10-0-0,52
  3. SIFROL [Suspect]
     Indication: PARKINSON^S DISEASE
     Dates: start: 2004
  4. MADOPAR [Concomitant]
     Indication: PARKINSON^S DISEASE
  5. L-THYROXIN [Concomitant]
     Dosage: 125
  6. DYTIDE H [Concomitant]
     Dosage: 50/25 MG
  7. CLIOVELLE [Concomitant]
  8. PHENLAFAXIN [Concomitant]
  9. PANTOPRAZOL [Concomitant]

REACTIONS (9)
  - Vitreous detachment [Recovered/Resolved with Sequelae]
  - Vitreous detachment [Recovered/Resolved with Sequelae]
  - Retinal tear [Recovered/Resolved with Sequelae]
  - Retinal detachment [Recovered/Resolved with Sequelae]
  - Eye disorder [Recovered/Resolved with Sequelae]
  - Vision blurred [Recovered/Resolved with Sequelae]
  - Visual impairment [Recovered/Resolved with Sequelae]
  - Visual acuity reduced [Recovered/Resolved with Sequelae]
  - Visual impairment [Recovered/Resolved with Sequelae]
